FAERS Safety Report 18666064 (Version 1)
Quarter: 2020Q4

REPORT INFORMATION
  Report Type: Spontaneous
  Country: GB (occurrence: GB)
  Receive Date: 20201226
  Receipt Date: 20201226
  Transmission Date: 20210114
  Serious: No
  Sender: FDA-Public Use
  Company Number: GB-ALKEM LABORATORIES LIMITED-GB-ALKEM-2020-07680

PATIENT
  Age: 52 Year
  Sex: Male

DRUGS (3)
  1. PREDNISOLONE. [Concomitant]
     Active Substance: PREDNISOLONE
     Indication: ILL-DEFINED DISORDER
     Dosage: UNK
     Route: 065
  2. AMGEVITA [Suspect]
     Active Substance: ADALIMUMAB
     Indication: SCLERITIS
     Dosage: 40 MILLIGRAM, ONCE IN 2 WEEKS
     Route: 058
     Dates: start: 20190601
  3. MYCOPHENOLATE MOFETIL. [Suspect]
     Active Substance: MYCOPHENOLATE MOFETIL
     Indication: SCLERITIS
     Dosage: 1 BD CHART
     Route: 048
     Dates: start: 20180601

REACTIONS (1)
  - Alopecia [Not Recovered/Not Resolved]

NARRATIVE: CASE EVENT DATE: 20200401
